FAERS Safety Report 7852134-7 (Version None)
Quarter: 2011Q4

REPORT INFORMATION
  Report Type: 
  Country: None (occurrence: None)
  Receive Date: 20111026
  Receipt Date: 20111021
  Transmission Date: 20120403
  Serious: Yes (Hospitalization)
  Sender: FDA-Public Use
  Company Number: FR-PFIZER INC-2011254605

PATIENT
  Age: 68 Year
  Sex: Male

DRUGS (8)
  1. PREVISCAN [Concomitant]
     Dosage: 5 MG DAILY
  2. AMIKACIN [Suspect]
     Indication: PYREXIA
     Dosage: 1200 MG DAILY
     Dates: start: 20110915
  3. FLECAINIDE ACETATE [Suspect]
     Dosage: 2 DF DAILY
  4. PIPERACILLIN AND TAZOBACTAM [Suspect]
     Indication: PYREXIA
     Dosage: 4 G/500 MG THREE TIMES DAILY
     Dates: start: 20110915
  5. LOVENOX [Suspect]
  6. VITAMIN K TAB [Concomitant]
     Dosage: UNK
     Dates: start: 20110916
  7. ETOPOSIDE [Suspect]
     Indication: HISTIOCYTOSIS HAEMATOPHAGIC
     Dosage: 150 MG/M2, 1X/DAY
     Dates: start: 20110916
  8. ALLOPURINOL [Concomitant]

REACTIONS (5)
  - DYSPNOEA [None]
  - ANURIA [None]
  - CYANOSIS [None]
  - VENTRICULAR TACHYCARDIA [None]
  - COMA [None]
